FAERS Safety Report 8254333-1 (Version None)
Quarter: 2012Q2

REPORT INFORMATION
  Report Type: 
  Country: None (occurrence: None)
  Receive Date: 20120402
  Receipt Date: 20120323
  Transmission Date: 20120825
  Serious: No
  Sender: FDA-Public Use
  Company Number: US-AMGEN-USASP2012018910

PATIENT
  Age: 57 Year
  Sex: Female

DRUGS (13)
  1. HYDROXYCHLOROQUINE SULFATE [Concomitant]
     Dosage: UNK
  2. MULTIVITAMIN                       /00097801/ [Concomitant]
     Dosage: UNK
  3. ENBREL [Suspect]
     Indication: PSORIATIC ARTHROPATHY
     Dosage: 50 MG, Q2WK
     Dates: start: 20120101
  4. METHOTREXATE [Concomitant]
     Dosage: UNK
  5. LIDODERM [Concomitant]
     Dosage: UNK
  6. LEVOTHYROXINE SODIUM [Concomitant]
     Dosage: UNK
  7. CYMBALTA [Concomitant]
     Dosage: 2 MG, UNK
  8. CLONAZEPAM [Concomitant]
     Dosage: UNK
  9. SERTRALINE HYDROCHLORIDE [Concomitant]
     Dosage: UNK
  10. BACLOFEN [Concomitant]
     Dosage: UNK
  11. BOTOX [Concomitant]
     Dosage: UNK
  12. NORVASC [Concomitant]
     Dosage: UNK
  13. PRAVASTATIN [Concomitant]
     Dosage: UNK

REACTIONS (1)
  - INFLUENZA LIKE ILLNESS [None]
